FAERS Safety Report 9748585 (Version 3)
Quarter: 2016Q2

REPORT INFORMATION
  Report Type: Spontaneous
  Country: PL (occurrence: PL)
  Receive Date: 20131212
  Receipt Date: 20160518
  Transmission Date: 20160815
  Serious: Yes (Hospitalization)
  Sender: FDA-Public Use
  Company Number: PL-TEVA-449004ISR

PATIENT
  Age: 30 Year
  Sex: Male

DRUGS (3)
  1. CLENBUTEROL [Interacting]
     Active Substance: CLENBUTEROL
     Indication: SUICIDE ATTEMPT
     Dosage: HIGH DOSE
     Route: 048
  2. ALPRAZOLAM. [Interacting]
     Active Substance: ALPRAZOLAM
     Indication: SUICIDE ATTEMPT
     Dosage: HIGH DOSE
     Route: 048
  3. OLANZAPINE. [Suspect]
     Active Substance: OLANZAPINE
     Indication: SUICIDE ATTEMPT
     Dosage: HIGH DOSE
     Route: 048

REACTIONS (10)
  - Toxicity to various agents [Recovering/Resolving]
  - Respiration abnormal [Recovered/Resolved]
  - Tremor [Unknown]
  - Hypokalaemia [Recovered/Resolved]
  - Sinus tachycardia [Recovered/Resolved]
  - Metabolic acidosis [Unknown]
  - Overdose [Unknown]
  - Somnolence [Unknown]
  - Suicide attempt [Recovering/Resolving]
  - Hypothermia [Unknown]
